FAERS Safety Report 23875153 (Version 1)
Quarter: 2024Q2

REPORT INFORMATION
  Report Type: Spontaneous
  Country: CA (occurrence: CA)
  Receive Date: 20240520
  Receipt Date: 20240520
  Transmission Date: 20240715
  Serious: Yes (Hospitalization, Other)
  Sender: FDA-Public Use
  Company Number: CA-OTSUKA-2024_013904

PATIENT
  Age: 3 Decade

DRUGS (2)
  1. ARIPIPRAZOLE [Suspect]
     Active Substance: ARIPIPRAZOLE
     Indication: Evidence based treatment
     Dosage: UNK
     Route: 048
  2. QUETIAPINE [Suspect]
     Active Substance: QUETIAPINE
     Indication: Evidence based treatment
     Dosage: UNK, QD (1 EVERY, 1 DAY)
     Route: 048

REACTIONS (7)
  - Substance use disorder [Unknown]
  - Nicotine dependence [Unknown]
  - Drug dependence [Unknown]
  - Apathy [Unknown]
  - Libido decreased [Unknown]
  - Depressed mood [Unknown]
  - Sedation [Unknown]
